FAERS Safety Report 19002027 (Version 1)
Quarter: 2021Q1

REPORT INFORMATION
  Report Type: Spontaneous
  Country: US (occurrence: US)
  Receive Date: 20210312
  Receipt Date: 20210312
  Transmission Date: 20210420
  Serious: No
  Sender: FDA-Public Use
  Company Number: US-SA-2021SA081790

PATIENT
  Age: 58 Year
  Sex: Female

DRUGS (9)
  1. ADVIL [Concomitant]
     Active Substance: IBUPROFEN
  2. CYCLOSPORINE. [Concomitant]
     Active Substance: CYCLOSPORINE
  3. TRIAMCINOLON [TRIAMCINOLONE] [Concomitant]
     Active Substance: TRIAMCINOLONE
  4. CLOBETASOL [Concomitant]
     Active Substance: CLOBETASOL
  5. HYDROXYZINE [HYDROXYZINE HYDROCHLORIDE] [Concomitant]
     Active Substance: HYDROXYZINE HYDROCHLORIDE
  6. CETRIZINE [Concomitant]
     Active Substance: CETIRIZINE HYDROCHLORIDE
  7. DUPIXENT [Suspect]
     Active Substance: DUPILUMAB
     Indication: DERMATITIS ATOPIC
     Dosage: UNK
  8. DUPIXENT [Suspect]
     Active Substance: DUPILUMAB
     Dosage: 300 MG, QOW
     Route: 058
     Dates: start: 20210310
  9. PREDNISONE. [Concomitant]
     Active Substance: PREDNISONE

REACTIONS (2)
  - Rash [Not Recovered/Not Resolved]
  - Discomfort [Not Recovered/Not Resolved]

NARRATIVE: CASE EVENT DATE: 20210308
